FAERS Safety Report 22766098 (Version 2)
Quarter: 2023Q4

REPORT INFORMATION
  Report Type: Report from Study
  Country: SE (occurrence: DK)
  Receive Date: 20230731
  Receipt Date: 20231020
  Transmission Date: 20240110
  Serious: Yes (Death, Hospitalization, Other)
  Sender: FDA-Public Use
  Company Number: SE-ASTELLAS-2023US021368

PATIENT
  Age: 40 Year
  Sex: Male

DRUGS (1)
  1. TACROLIMUS [Suspect]
     Active Substance: TACROLIMUS
     Indication: Product used for unknown indication
     Dosage: UNK UNK, UNKNOWN FREQ.
     Route: 065
     Dates: start: 20180124

REACTIONS (34)
  - Respiratory failure [Fatal]
  - Bacterial infection [Recovered/Resolved]
  - Bacterial infection [Recovered/Resolved]
  - Gout [Recovered/Resolved]
  - Fungal infection [Recovered/Resolved]
  - Bacterial infection [Recovered/Resolved]
  - Peripheral swelling [Recovered/Resolved]
  - Peroneal nerve palsy [Recovered/Resolved with Sequelae]
  - Transplant rejection [Recovered/Resolved]
  - Paraesthesia [Recovered/Resolved with Sequelae]
  - Anaemia [Recovered/Resolved]
  - Bacterial infection [Recovered/Resolved]
  - Bacterial infection [Recovered/Resolved]
  - Bacterial infection [Recovered/Resolved]
  - Bacterial infection [Recovered/Resolved]
  - Fungal infection [Recovered/Resolved]
  - Immunosuppressant drug level increased [Recovered/Resolved]
  - Renal impairment [Not Recovered/Not Resolved]
  - Leukopenia [Recovered/Resolved]
  - Dyspnoea [Recovered/Resolved]
  - Blood glucose fluctuation [Recovered/Resolved]
  - Chronic respiratory failure [Recovered/Resolved]
  - Complications of transplanted lung [Recovered/Resolved with Sequelae]
  - Transplant rejection [Recovered/Resolved with Sequelae]
  - Dyspnoea [Recovered/Resolved with Sequelae]
  - Oxygen saturation decreased [Recovered/Resolved]
  - Dyspnoea [Recovered/Resolved]
  - Oxygen saturation decreased [Recovered/Resolved]
  - Arrhythmia [Recovered/Resolved]
  - Arrhythmia [Recovered/Resolved with Sequelae]
  - Arrhythmia [Recovered/Resolved]
  - Respiratory failure [Recovered/Resolved]
  - Respiratory failure [Recovered/Resolved]
  - Pulmonary function test decreased [Recovered/Resolved with Sequelae]

NARRATIVE: CASE EVENT DATE: 20180125
